FAERS Safety Report 23849479 (Version 1)
Quarter: 2024Q2

REPORT INFORMATION
  Report Type: Spontaneous
  Country: US (occurrence: US)
  Receive Date: 20240513
  Receipt Date: 20240513
  Transmission Date: 20240716
  Serious: No
  Sender: FDA-Public Use
  Company Number: US-MYLANLABS-2024M1039785

PATIENT

DRUGS (1)
  1. CYCLOSPORINE [Suspect]
     Active Substance: CYCLOSPORINE
     Indication: Dry eye
     Dosage: UNK
     Route: 065

REACTIONS (5)
  - Therapeutic response changed [Unknown]
  - Product formulation issue [Unknown]
  - Product physical issue [Unknown]
  - Product substitution issue [Unknown]
  - Drug ineffective [Unknown]
